FAERS Safety Report 7025104-9 (Version None)
Quarter: 2010Q4

REPORT INFORMATION
  Report Type: 
  Country: None (occurrence: None)
  Receive Date: 20101001
  Receipt Date: 20100707
  Transmission Date: 20110411
  Serious: No
  Sender: FDA-Public Use
  Company Number: US-NOVEN-10US001344

PATIENT
  Age: 81 Year
  Sex: Male

DRUGS (5)
  1. FENTANYL [Suspect]
     Indication: BACK PAIN
     Dosage: UNK
     Route: 062
     Dates: start: 20100701
  2. ASPIRIN [Concomitant]
     Indication: PRODUCT USED FOR UNKNOWN INDICATION
  3. ^HEART PILL^ [Concomitant]
     Indication: PRODUCT USED FOR UNKNOWN INDICATION
  4. ^MEDICATION TO CONTROL BOWELS^ [Concomitant]
     Indication: BOWEL MOVEMENT IRREGULARITY
  5. ADVIL LIQUI-GELS [Concomitant]
     Indication: PRODUCT USED FOR UNKNOWN INDICATION

REACTIONS (2)
  - COUGH [None]
  - PRODUCT QUALITY ISSUE [None]
